FAERS Safety Report 6131091-8 (Version None)
Quarter: 2009Q1

REPORT INFORMATION
  Report Type: 
  Country: None (occurrence: None)
  Receive Date: 20090325
  Receipt Date: 20090205
  Transmission Date: 20090719
  Serious: No
  Sender: FDA-Public Use
  Company Number: US-BAYER-200915015NA

PATIENT
  Age: 23 Year
  Sex: Female

DRUGS (2)
  1. YASMIN [Suspect]
     Indication: CONTRACEPTION
     Route: 048
     Dates: start: 20090117
  2. PLAN B [Suspect]
     Indication: POST COITAL CONTRACEPTION
     Dosage: UNIT DOSE: 0.75 MG
     Route: 048
     Dates: start: 20090131, end: 20090131

REACTIONS (3)
  - MENSTRUATION DELAYED [None]
  - VULVOVAGINAL BURNING SENSATION [None]
  - VULVOVAGINAL PRURITUS [None]
